FAERS Safety Report 6662251-5 (Version None)
Quarter: 2010Q1

REPORT INFORMATION
  Report Type: 
  Country: None (occurrence: None)
  Receive Date: 20100331
  Receipt Date: 20100317
  Transmission Date: 20100710
  Serious: Yes (Other)
  Sender: FDA-Public Use
  Company Number: GB-MYLANLABS-2010S1004656

PATIENT
  Sex: Female

DRUGS (2)
  1. OMEPRAZOLE [Suspect]
     Indication: DRUG HYPERSENSITIVITY
  2. PENICILLIN [Concomitant]
     Indication: DRUG USE FOR UNKNOWN INDICATION
     Dosage: ADR

REACTIONS (3)
  - ABDOMINAL DISCOMFORT [None]
  - DYSPEPSIA [None]
  - PRODUCT SUBSTITUTION ISSUE [None]
